FAERS Safety Report 13498359 (Version 1)
Quarter: 2017Q2

REPORT INFORMATION
  Report Type: Spontaneous
  Country: US (occurrence: US)
  Receive Date: 20170430
  Receipt Date: 20170430
  Transmission Date: 20170830
  Serious: No
  Sender: FDA-Public Use
  Company Number: PHEH2017US012521

PATIENT
  Age: 94 Year
  Sex: Female
  Weight: 25.92 kg

DRUGS (5)
  1. FUROSEMIDE. [Concomitant]
     Active Substance: FUROSEMIDE
     Indication: POLYURIA
     Dosage: 20 MG, TIW
     Route: 048
  2. CARTIA XT [Concomitant]
     Active Substance: DILTIAZEM HYDROCHLORIDE
     Indication: CARDIAC DISORDER
     Dosage: 180 MG, QD
     Route: 048
  3. CYCLOGYL [Concomitant]
     Active Substance: CYCLOPENTOLATE HYDROCHLORIDE
     Indication: PRODUCT USED FOR UNKNOWN INDICATION
     Dosage: TID (APPLY DROPS)
     Route: 065
  4. PREDNISOLONE ACETATE. [Suspect]
     Active Substance: PREDNISOLONE ACETATE
     Indication: HERPES ZOSTER
     Dosage: QD (EVERY NIGHT)
     Route: 047
     Dates: start: 201501
  5. PREDNISOLONE ACETATE. [Suspect]
     Active Substance: PREDNISOLONE ACETATE
     Dosage: QD  (EVERY NIGHT)
     Route: 047
     Dates: start: 201501

REACTIONS (5)
  - Eye irritation [Unknown]
  - Corneal scar [Unknown]
  - Eye discharge [Unknown]
  - Drug ineffective [Unknown]
  - Lacrimation increased [Unknown]

NARRATIVE: CASE EVENT DATE: 20170426
